FAERS Safety Report 25363622 (Version 2)
Quarter: 2025Q2

REPORT INFORMATION
  Report Type: Spontaneous
  Country: SE (occurrence: SE)
  Receive Date: 20250527
  Receipt Date: 20250623
  Transmission Date: 20250717
  Serious: Yes (Hospitalization, Disabling, Other)
  Sender: PFIZER
  Company Number: SE-PFIZER INC-202500107268

PATIENT
  Age: 39 Year
  Sex: Female
  Weight: 56 kg

DRUGS (1)
  1. DEPO-PROVERA [Suspect]
     Active Substance: MEDROXYPROGESTERONE ACETATE
     Indication: Contraception
     Dosage: UNK, EVERY 3 MONTHS
     Route: 030
     Dates: start: 2003, end: 2008

REACTIONS (7)
  - Cerebral thrombosis [Recovered/Resolved with Sequelae]
  - Cognitive disorder [Unknown]
  - Photophobia [Unknown]
  - Hyperacusis [Unknown]
  - Mental fatigue [Unknown]
  - Memory impairment [Unknown]
  - Vascular dementia [Unknown]

NARRATIVE: CASE EVENT DATE: 20080801
